FAERS Safety Report 9714292 (Version 1)
Quarter: 2013Q4

REPORT INFORMATION
  Report Type: Report from Study
  Country: DE (occurrence: TR)
  Receive Date: 20131126
  Receipt Date: 20131126
  Transmission Date: 20140711
  Serious: Yes (Death)
  Sender: FDA-Public Use
  Company Number: DE-ACTELION-A-US2013-91821

PATIENT
  Age: 62 Year
  Sex: Female
  Weight: 60 kg

DRUGS (1)
  1. VENTAVIS [Suspect]
     Indication: VENTRICULAR SEPTAL DEFECT
     Dosage: 6X1
     Route: 055
     Dates: start: 20131110, end: 20131115

REACTIONS (2)
  - Death [Fatal]
  - Off label use [Unknown]
